FAERS Safety Report 4362984-X (Version None)
Quarter: 2004Q2

REPORT INFORMATION
  Report Type: 
  Country: None (occurrence: None)
  Receive Date: 20040519
  Receipt Date: 20040503
  Transmission Date: 20050107
  Serious: Yes (Hospitalization)
  Sender: FDA-Public Use
  Company Number: 2004-BP-03399EX

PATIENT
  Age: 62 Year
  Sex: Male

DRUGS (8)
  1. LEUCOVORIN CALCIUM [Suspect]
     Indication: GASTRIC CANCER
     Dosage: 21 DAY CYCLE, LEUCOVORIN DAY 1-14 (90 MG/DAY), PO
     Route: 048
     Dates: start: 20030625, end: 20030906
  2. LEUCOVORIN CALCIUM [Suspect]
     Indication: GASTRIC CANCER
     Dosage: 21 DAY CYCLE, LEUCOVORIN DAY 1-14 (90 MG/DAY), PO
     Route: 048
     Dates: start: 20031025
  3. TAXOL [Suspect]
     Indication: GASTRIC CANCER
     Dosage: 21 DAY CYCLE, TAXOL ON DAY 1 AND 8 (161 MG/DOSE), IV
     Route: 042
     Dates: start: 20030625, end: 20030902
  4. TAXOL [Suspect]
     Indication: GASTRIC CANCER
     Dosage: 21 DAY CYCLE, TAXOL ON DAY 1 AND 8 (161 MG/DOSE), IV
     Route: 042
     Dates: start: 20031023
  5. UFT [Suspect]
     Indication: GASTRIC CANCER
     Dosage: 21 DAY CYCLE, UFT DAY 1-14 (500 MG/DAY)
     Dates: start: 20030625, end: 20030906
  6. TAMSULOSIN [Concomitant]
  7. AMARYL (GLIMEPIRIDE) (ORAL ANTIDIABETICS) [Concomitant]
  8. BIOFERMIN (BIOFERMIN) [Concomitant]

REACTIONS (3)
  - DIARRHOEA [None]
  - NEUTROPENIA [None]
  - PYREXIA [None]
